FAERS Safety Report 12668468 (Version 1)
Quarter: 2016Q3

REPORT INFORMATION
  Report Type: Spontaneous
  Country: FR (occurrence: FR)
  Receive Date: 20160819
  Receipt Date: 20160819
  Transmission Date: 20161109
  Serious: Yes (Hospitalization)
  Sender: FDA-Public Use
  Company Number: FR-SA-2016SA147737

PATIENT
  Age: 91 Year
  Sex: Male

DRUGS (5)
  1. CELIPROLOL [Concomitant]
     Active Substance: CELIPROLOL
     Route: 065
  2. LOVENOX [Suspect]
     Active Substance: ENOXAPARIN SODIUM
     Indication: CARDIOVASCULAR EVENT PROPHYLAXIS
     Route: 058
     Dates: start: 20160513, end: 20160526
  3. KARDEGIC [Suspect]
     Active Substance: ASPIRIN LYSINE
     Indication: ISCHAEMIC STROKE
     Route: 048
     Dates: end: 20160526
  4. LAMOTRIGINE. [Concomitant]
     Active Substance: LAMOTRIGINE
     Route: 065
  5. AMLODIPINE [Concomitant]
     Active Substance: AMLODIPINE BESYLATE
     Route: 065

REACTIONS (3)
  - Melaena [Recovered/Resolved]
  - Duodenal ulcer haemorrhage [Recovered/Resolved]
  - Anaemia [Recovered/Resolved]

NARRATIVE: CASE EVENT DATE: 20160526
